FAERS Safety Report 7478910-0 (Version None)
Quarter: 2011Q2

REPORT INFORMATION
  Report Type: 
  Country: None (occurrence: None)
  Receive Date: 20110513
  Receipt Date: 20110505
  Transmission Date: 20111010
  Serious: Yes (Hospitalization, Other)
  Sender: FDA-Public Use
  Company Number: US-US-EMD SERONO, INC.-7057993

PATIENT
  Sex: Female
  Weight: 98 kg

DRUGS (3)
  1. PREMARIN [Concomitant]
     Dates: start: 19920101, end: 20110101
  2. REBIF [Suspect]
     Indication: PRODUCT USED FOR UNKNOWN INDICATION
     Route: 058
     Dates: start: 20090302, end: 20110401
  3. UNSPECIFIED MEDICATIONS [Concomitant]

REACTIONS (3)
  - WHITE BLOOD CELL COUNT DECREASED [None]
  - SMEAR CERVIX ABNORMAL [None]
  - BREAST CANCER [None]
